FAERS Safety Report 6781130-6 (Version None)
Quarter: 2010Q2

REPORT INFORMATION
  Report Type: 
  Country: None (occurrence: None)
  Receive Date: 20100621
  Receipt Date: 20100519
  Transmission Date: 20101027
  Serious: No
  Sender: FDA-Public Use
  Company Number: US-BAYER-201015806BCC

PATIENT
  Age: 54 Year
  Sex: Female
  Weight: 50 kg

DRUGS (1)
  1. ALEVE [Suspect]
     Indication: HEADACHE
     Route: 048

REACTIONS (1)
  - HEADACHE [None]
